FAERS Safety Report 8251988-2 (Version None)
Quarter: 2012Q2

REPORT INFORMATION
  Report Type: 
  Country: None (occurrence: None)
  Receive Date: 20120402
  Receipt Date: 20120320
  Transmission Date: 20120825
  Serious: Yes (Other)
  Sender: FDA-Public Use
  Company Number: BR-CTI_01453_2012

PATIENT
  Sex: Female

DRUGS (6)
  1. DESLORATADINE [Suspect]
     Indication: SINUSITIS
     Route: 048
     Dates: start: 20120308, end: 20120318
  2. FACTIVE [Suspect]
     Indication: SINUSITIS
     Route: 048
     Dates: start: 20120308, end: 20120314
  3. DESLORATADINE [Suspect]
     Indication: TYMPANIC MEMBRANE PERFORATION
     Route: 048
     Dates: start: 20120308, end: 20120318
  4. FACTIVE [Suspect]
     Indication: TYMPANIC MEMBRANE PERFORATION
     Route: 048
     Dates: start: 20120308, end: 20120314
  5. PRELONE [Suspect]
     Indication: TYMPANIC MEMBRANE PERFORATION
     Route: 048
     Dates: start: 20120308, end: 20120318
  6. PRELONE [Suspect]
     Indication: SINUSITIS
     Route: 048
     Dates: start: 20120308, end: 20120318

REACTIONS (5)
  - OEDEMA MOUTH [None]
  - HYPERSENSITIVITY [None]
  - MUCOCUTANEOUS RASH [None]
  - TOXIC SKIN ERUPTION [None]
  - ECZEMA EYELIDS [None]
